FAERS Safety Report 8828661 (Version 2)
Quarter: 2012Q4

REPORT INFORMATION
  Report Type: 
  Country: DE (occurrence: IT)
  Receive Date: 20121005
  Receipt Date: 20121023
  Transmission Date: 20130627
  Serious: Yes (Life-Threatening)
  Sender: FDA-Public Use
  Company Number: IT-BRISTOL-MYERS SQUIBB COMPANY-17012519

PATIENT
  Age: 58 Year

DRUGS (2)
  1. ERBITUX SOLN FOR INF [Suspect]
     Indication: COLON CANCER
     Route: 042
     Dates: start: 20120622, end: 20120705
  2. CAMPTO [Concomitant]
     Dosage: Campto 20mg/ml

REACTIONS (1)
  - Rash [Recovering/Resolving]
